FAERS Safety Report 16922180 (Version 1)
Quarter: 2019Q4

REPORT INFORMATION
  Report Type: Spontaneous
  Country: CN (occurrence: CN)
  Receive Date: 20191015
  Receipt Date: 20191015
  Transmission Date: 20200122
  Serious: Yes (Hospitalization)
  Sender: FDA-Public Use
  Company Number: CN-BAXTER-2019BAX020087

PATIENT
  Age: 51 Year
  Sex: Male
  Weight: 55 kg

DRUGS (8)
  1. STILAMIN [SOMATOSTATIN] [Suspect]
     Active Substance: SOMATOSTATIN
     Indication: HAEMOSTASIS
     Dosage: SOMATOSTATIN + 0.9% SODIUM CHLORIDE (DRUG RE-INTRODUCED)
     Route: 041
     Dates: start: 2019
  2. 0.9% SODIUM CHLORIDE INJECTION [Suspect]
     Active Substance: SODIUM CHLORIDE
     Dosage: ESOMEPRAZOLE SODIUM 40 MG + 0.9% SODIUM CHLORIDE INJECTION 100ML
     Route: 041
     Dates: start: 20190924, end: 20190930
  3. 0.9% SODIUM CHLORIDE INJECTION [Suspect]
     Active Substance: SODIUM CHLORIDE
     Dosage: ESOMEPRAZOLE SODIUM + 0.9% SODIUM CHLORIDE (DRUG RE-INTRODUCED)
     Route: 041
     Dates: start: 2019
  4. STILAMIN [SOMATOSTATIN] [Suspect]
     Active Substance: SOMATOSTATIN
     Indication: DRUG THERAPY
     Dosage: SOMATOSTATIN 6 MG + 0.9% SODIUM CHLORIDE 100ML AT 250 UG/H (4.2ML/H) FOR CONTINUOUS PUMPING
     Route: 041
     Dates: start: 20190924, end: 20190926
  5. ESOMEPRAZOLE SODIUM. [Suspect]
     Active Substance: ESOMEPRAZOLE SODIUM
     Indication: HAEMOSTASIS
     Dosage: ESOMEPRAZOLE SODIUM + 0.9% SODIUM CHLORIDE INJECTION IVGTT  (DRUG RE-INTRODUCED)
     Route: 041
     Dates: start: 2019
  6. 0.9% SODIUM CHLORIDE INJECTION [Suspect]
     Active Substance: SODIUM CHLORIDE
     Indication: MEDICATION DILUTION
     Dosage: SOMATOSTATIN 6 MG + 0.9% SODIUM CHLORIDE 100ML AT 250 UG/H (4.2ML/H) FOR CONTINUOUS PUMPING
     Route: 041
     Dates: start: 20190924, end: 20190926
  7. ESOMEPRAZOLE SODIUM. [Suspect]
     Active Substance: ESOMEPRAZOLE SODIUM
     Indication: DRUG THERAPY
     Dosage: ESOMEPRAZOLE SODIUM 40 MG + 0.9% SODIUM CHLORIDE INJECTION 100ML IVGTT
     Route: 041
     Dates: start: 20190924, end: 20190930
  8. 0.9% SODIUM CHLORIDE INJECTION [Suspect]
     Active Substance: SODIUM CHLORIDE
     Dosage: SOMATOSTATIN + 0.9% SODIUM CHLORIDE (DRUG RE-INTRODUCED)
     Route: 041
     Dates: start: 2019

REACTIONS (1)
  - Hypoglycaemia [Recovering/Resolving]

NARRATIVE: CASE EVENT DATE: 20190925
